FAERS Safety Report 17514495 (Version 2)
Quarter: 2020Q1

REPORT INFORMATION
  Report Type: Spontaneous
  Country: US (occurrence: US)
  Receive Date: 20200307
  Receipt Date: 20200309
  Transmission Date: 20200409
  Serious: No
  Sender: FDA-Public Use
  Company Number: NVSC2020US060208

PATIENT
  Age: 95 Year
  Sex: Female

DRUGS (1)
  1. NITROFURANTOIN CAPSULES USP [Suspect]
     Active Substance: NITROFURANTOIN
     Indication: PRODUCT USED FOR UNKNOWN INDICATION
     Dosage: UNK UNK, UNKNOWN
     Route: 065

REACTIONS (3)
  - Product dose omission [Unknown]
  - Wrong technique in product usage process [Unknown]
  - Product quality issue [Unknown]
